FAERS Safety Report 5442885-6 (Version None)
Quarter: 2007Q3

REPORT INFORMATION
  Report Type: 
  Country: None (occurrence: None)
  Receive Date: 20070831
  Receipt Date: 20070831
  Transmission Date: 20080115
  Serious: Yes (Other)
  Sender: FDA-Public Use
  Company Number: None

PATIENT
  Sex: Female

DRUGS (2)
  1. XYREM [Suspect]
     Indication: HYPERSOMNIA
     Dosage: 3GM BID PO
     Route: 048
     Dates: start: 20070301
  2. XYREM [Suspect]
     Indication: NARCOLEPSY
     Dosage: 3GM BID PO
     Route: 048
     Dates: start: 20070301

REACTIONS (2)
  - CONTUSION [None]
  - FACE INJURY [None]
